APPROVED DRUG PRODUCT: MINOCYCLINE HYDROCHLORIDE
Active Ingredient: MINOCYCLINE HYDROCHLORIDE
Strength: EQ 45MG BASE
Dosage Form/Route: TABLET, EXTENDED RELEASE;ORAL
Application: A090422 | Product #001 | TE Code: AB
Applicant: SANDOZ INC
Approved: Aug 13, 2009 | RLD: No | RS: No | Type: RX